FAERS Safety Report 4518853-5 (Version None)
Quarter: 2004Q4

REPORT INFORMATION
  Report Type: 
  Country: None (occurrence: None)
  Receive Date: 20041201
  Receipt Date: 20041117
  Transmission Date: 20050328
  Serious: Yes (Other)
  Sender: FDA-Public Use
  Company Number: 200415588BCC

PATIENT
  Sex: Male
  Weight: 81.6475 kg

DRUGS (10)
  1. ORIGINAL ALKA-SELTZER TABLETS [Suspect]
     Indication: DYSPEPSIA
     Dosage: 1300 MG, TOTAL DAILY, ORAL
     Route: 048
  2. ASPIRIN [Suspect]
     Indication: MYOCARDIAL INFARCTION
     Dosage: 81 MG, QD, ORAL
     Route: 048
  3. ASPIRIN [Suspect]
     Indication: PROPHYLAXIS
     Dosage: 81 MG, QD, ORAL
     Route: 048
  4. ALBUTEROL [Concomitant]
  5. IPRATROPIUM BROMIDE [Concomitant]
  6. BUDESONIDE [Concomitant]
  7. DYAZIDE [Concomitant]
  8. VITAMINS (PURITAN BRAND) [Concomitant]
  9. FLOVENT [Concomitant]
  10. NEXIUM [Concomitant]

REACTIONS (1)
  - EYE HAEMORRHAGE [None]
